FAERS Safety Report 16955760 (Version 1)
Quarter: 2019Q4

REPORT INFORMATION
  Report Type: Spontaneous
  Country: US (occurrence: US)
  Receive Date: 20190905
  Receipt Date: 20190905
  Transmission Date: 20200122
  Serious: Yes (Other)
  Sender: FDA-Public Use
  Company Number: None

PATIENT
  Age: 95 Year
  Sex: Female
  Weight: 51.71 kg

DRUGS (1)
  1. RHOPRESSA [Suspect]
     Active Substance: NETARSUDIL MESYLATE
     Indication: GLAUCOMA

REACTIONS (5)
  - Macular degeneration [None]
  - Vision blurred [None]
  - Impaired driving ability [None]
  - Blindness [None]
  - Blindness transient [None]

NARRATIVE: CASE EVENT DATE: 20190301
